FAERS Safety Report 7574085-8 (Version None)
Quarter: 2011Q2

REPORT INFORMATION
  Report Type: 
  Country: None (occurrence: None)
  Receive Date: 20110627
  Receipt Date: 20110616
  Transmission Date: 20111010
  Serious: Yes (Other)
  Sender: FDA-Public Use
  Company Number: US-JNJFOC-20110609888

PATIENT
  Sex: Female
  Weight: 81.65 kg

DRUGS (3)
  1. ADVAIR DISKUS 100/50 [Concomitant]
     Indication: ASTHMA
     Route: 055
  2. CLARITIN [Concomitant]
     Indication: MULTIPLE ALLERGIES
     Route: 048
  3. ORTHO EVRA [Suspect]
     Indication: MENSTRUATION IRREGULAR
     Dosage: 1 PATCH EVERY WEEK FOR 3 WEEKS FOLLOWED BY PATCH FREE WEEK
     Route: 062

REACTIONS (3)
  - OFF LABEL USE [None]
  - SPINAL FRACTURE [None]
  - PRODUCT QUALITY ISSUE [None]
